FAERS Safety Report 10178058 (Version 1)
Quarter: 2014Q2

REPORT INFORMATION
  Report Type: Spontaneous
  Country: IT (occurrence: IT)
  Receive Date: 20140518
  Receipt Date: 20140518
  Transmission Date: 20141212
  Serious: Yes (Hospitalization)
  Sender: FDA-Public Use
  Company Number: PHHY2014IT059306

PATIENT
  Age: 76 Year
  Sex: Male

DRUGS (5)
  1. DICLOFENAC [Suspect]
     Indication: PAIN
     Dosage: 150 MG, DAILY
     Route: 030
     Dates: start: 20140307, end: 20140310
  2. TAMSULOSIN HYDROCHLORIDE [Concomitant]
  3. RAMIPRIL [Concomitant]
  4. OMEPRAZOLE [Concomitant]
  5. ENOXAPARIN [Concomitant]

REACTIONS (2)
  - Substance abuse [Recovering/Resolving]
  - Renal failure acute [Recovering/Resolving]
